FAERS Safety Report 4789031-X (Version None)
Quarter: 2005Q4

REPORT INFORMATION
  Report Type: 
  Country: None (occurrence: None)
  Receive Date: 20051004
  Receipt Date: 20050920
  Transmission Date: 20060501
  Serious: Yes (Hospitalization)
  Sender: FDA-Public Use
  Company Number: 2005-01988

PATIENT
  Age: 61 Year
  Sex: Female
  Weight: 122.9 kg

DRUGS (2)
  1. VELCADE [Suspect]
     Indication: MULTIPLE MYELOMA
     Dosage: 8.40 MG, 2/WEEK, INTRAVENOUS
     Route: 042
     Dates: start: 20050509, end: 20050516
  2. DOXIL [Suspect]
     Indication: MULTIPLE MYELOMA
     Dosage: 64.80 MG, Q3WEEKS, INTRAVENOUS
     Route: 042
     Dates: start: 20050512, end: 20050512

REACTIONS (7)
  - ANAEMIA [None]
  - CATHETER RELATED INFECTION [None]
  - CATHETER SITE CELLULITIS [None]
  - HAEMOGLOBIN DECREASED [None]
  - OSTEOARTHRITIS [None]
  - PAIN IN EXTREMITY [None]
  - WOUND DRAINAGE [None]
